FAERS Safety Report 5229744-9 (Version None)
Quarter: 2007Q1

REPORT INFORMATION
  Report Type: 
  Country: None (occurrence: None)
  Receive Date: 20070206
  Receipt Date: 20070124
  Transmission Date: 20070707
  Serious: Yes (Other)
  Sender: FDA-Public Use
  Company Number: GB-PFIZER INC-2007007616

PATIENT
  Sex: Female
  Weight: 62 kg

DRUGS (5)
  1. GABAPENTIN [Suspect]
     Indication: COMPLEX PARTIAL SEIZURES
     Dosage: TEXT:1 DOSE
     Route: 048
     Dates: start: 20060831, end: 20061020
  2. INFLUENZA VIRUS VACCINE [Concomitant]
  3. LAMOTRIGINE [Concomitant]
     Dates: start: 20050628
  4. PREGABALIN [Concomitant]
     Dates: start: 20061120
  5. TOPIRAMATE [Concomitant]
     Dates: end: 20061120

REACTIONS (1)
  - PSYCHIATRIC SYMPTOM [None]
